FAERS Safety Report 14641546 (Version 1)
Quarter: 2018Q1

REPORT INFORMATION
  Report Type: Spontaneous
  Country: ES (occurrence: ES)
  Receive Date: 20180315
  Receipt Date: 20180315
  Transmission Date: 20180509
  Serious: Yes (Life-Threatening, Hospitalization)
  Sender: FDA-Public Use
  Company Number: ES-PFIZER INC-2018103638

PATIENT
  Age: 50 Year

DRUGS (1)
  1. ALPROSTADIL. [Suspect]
     Active Substance: ALPROSTADIL
     Indication: PERIPHERAL VASCULAR DISORDER
     Dosage: 60 UG, 1X/DAY
     Route: 042
     Dates: start: 20171127, end: 20171206

REACTIONS (2)
  - Product use in unapproved indication [Unknown]
  - Acute pulmonary oedema [Recovered/Resolved]

NARRATIVE: CASE EVENT DATE: 20171127
